FAERS Safety Report 21686045 (Version 1)
Quarter: 2022Q4

REPORT INFORMATION
  Report Type: Other
  Country: DE (occurrence: None)
  Receive Date: 20221206
  Receipt Date: 20221206
  Transmission Date: 20230112
  Serious: No
  Sender: FDA-Public Use
  Company Number: DE-ROCHE-3113489

PATIENT
  Age: 53 Year
  Sex: Female

DRUGS (14)
  1. OCRELIZUMAB [Suspect]
     Active Substance: OCRELIZUMAB
     Indication: Relapsing multiple sclerosis
     Route: 042
     Dates: start: 20220218
  2. OCRELIZUMAB [Suspect]
     Active Substance: OCRELIZUMAB
     Route: 042
     Dates: start: 20220304
  3. OCRELIZUMAB [Suspect]
     Active Substance: OCRELIZUMAB
     Route: 042
     Dates: start: 20220822
  4. PREDNISOLONE [Concomitant]
     Active Substance: PREDNISOLONE
     Indication: Premedication
     Route: 042
     Dates: start: 20220218, end: 20220218
  5. PREDNISOLONE [Concomitant]
     Active Substance: PREDNISOLONE
     Route: 042
     Dates: start: 20220304, end: 20220304
  6. PREDNISOLONE [Concomitant]
     Active Substance: PREDNISOLONE
     Route: 042
     Dates: start: 20220822, end: 20220822
  7. EBASTINE [Concomitant]
     Active Substance: EBASTINE
     Indication: Premedication
     Route: 048
     Dates: start: 20220217, end: 20220219
  8. EBASTINE [Concomitant]
     Active Substance: EBASTINE
     Route: 048
     Dates: start: 20220303, end: 20220305
  9. EBASTINE [Concomitant]
     Active Substance: EBASTINE
     Route: 048
     Dates: start: 20220821
  10. SIMVASTATIN [Concomitant]
     Active Substance: SIMVASTATIN
     Indication: Dyslipidaemia
     Route: 048
     Dates: start: 201808
  11. VALSAMTRIO [Concomitant]
     Indication: Hypertension
     Route: 048
     Dates: start: 202104
  12. CHOLECALCIFEROL [Concomitant]
     Active Substance: CHOLECALCIFEROL
     Indication: Prophylaxis
     Route: 048
     Dates: start: 20211208
  13. ASPIRIN [Concomitant]
     Active Substance: ASPIRIN
     Indication: Hypertension
     Route: 048
     Dates: start: 202105
  14. COVID 19 VACCINE (UNK INGREDIENTS) [Concomitant]
     Indication: Prophylaxis
     Route: 030
     Dates: start: 20220113, end: 20220113

REACTIONS (4)
  - Lymphocyte count decreased [Not Recovered/Not Resolved]
  - Infusion related reaction [Recovered/Resolved]
  - C-reactive protein increased [Recovered/Resolved]
  - COVID-19 [Recovered/Resolved]

NARRATIVE: CASE EVENT DATE: 20220304
